FAERS Safety Report 20532507 (Version 5)
Quarter: 2023Q2

REPORT INFORMATION
  Report Type: Spontaneous
  Country: CA (occurrence: CA)
  Receive Date: 20220301
  Receipt Date: 20230523
  Transmission Date: 20230721
  Serious: Yes (Other)
  Sender: FDA-Public Use
  Company Number: CA-AMERICAN REGENT INC-2022000480

PATIENT
  Age: 51 Year
  Sex: Female

DRUGS (1)
  1. VENOFER [Suspect]
     Active Substance: IRON SUCROSE
     Indication: Serum ferritin decreased
     Dosage: 300 MILLIGRAM IN 250 ML NORMAL SALINE
     Dates: start: 20220216, end: 20220216

REACTIONS (7)
  - Dysphagia [Unknown]
  - Skin warm [Unknown]
  - Skin tightness [Unknown]
  - Urticaria [Unknown]
  - Paraesthesia [Unknown]
  - Pruritus [Unknown]
  - Product quality issue [Unknown]

NARRATIVE: CASE EVENT DATE: 20220216
